FAERS Safety Report 9230520 (Version 3)
Quarter: 2013Q4

REPORT INFORMATION
  Report Type: Spontaneous
  Country: US (occurrence: None)
  Receive Date: 20121031
  Receipt Date: 20131226
  Transmission Date: 20140711
  Serious: Yes (Other)
  Sender: FDA-Public Use
  Company Number: PHEH2012US016966

PATIENT
  Age: 52 Year
  Sex: Male
  Weight: 113.4 kg

DRUGS (13)
  1. GILENYA [Suspect]
     Indication: MULTIPLE SCLEROSIS
     Route: 048
     Dates: start: 201207
  2. CYMBALTA (DULOXETINE HYDROCHLORIDE) [Concomitant]
  3. TRAMADOL (TRAMADOL) [Concomitant]
  4. ADVAIR (FLUTICASONE PROPIONATE, SALMETEROL XINAFOATE) [Concomitant]
  5. VENTOLIN (SALBUTAMOL) [Concomitant]
  6. LORTAB (HYDROCODONE BITARTRATE, PARACETAMOL) [Concomitant]
  7. IBUPROFEN (IBUPROFEN) [Concomitant]
  8. ADDERALL (AMFETAMINE ASPARTATE, AMFETAMINE SULFATE, DEXAMFETAMINE SACCHARATE, DEXAMFETAMINE SULFATE) [Concomitant]
  9. VITAMIN D3 (COLECALCIFEROL) [Concomitant]
  10. AMITRIPTYLINE (AMITRIPTYLINE) [Concomitant]
  11. GABAPENTIN (GABAPENTIN) [Concomitant]
  12. OXYCODONE (OXYCODONE) [Concomitant]
  13. HYDROCODONE (HYDROCODONE) [Concomitant]

REACTIONS (6)
  - Fatigue [None]
  - Speech disorder [None]
  - Disturbance in attention [None]
  - Movement disorder [None]
  - Amnesia [None]
  - Dry mouth [None]
